FAERS Safety Report 14056136 (Version 12)
Quarter: 2020Q4

REPORT INFORMATION
  Report Type: Spontaneous
  Country: JP (occurrence: JP)
  Receive Date: 20171006
  Receipt Date: 20201002
  Transmission Date: 20210113
  Serious: Yes (Hospitalization, Disabling, Other)
  Sender: FDA-Public Use
  Company Number: JP-UNITED THERAPEUTICS-UNT-2017-014245

PATIENT
  Age: 45 Year
  Sex: Male
  Weight: 77 kg

DRUGS (32)
  1. REMODULIN [Suspect]
     Active Substance: TREPROSTINIL
     Dosage: 0.218 ?G/KG, CONTINUING
     Route: 041
     Dates: start: 201709, end: 201711
  2. TRAMCET [Suspect]
     Active Substance: ACETAMINOPHEN\TRAMADOL
     Dosage: 4 TABLETS/DAY
     Route: 048
     Dates: start: 2016
  3. TRACLEER [Concomitant]
     Active Substance: BOSENTAN
     Indication: PULMONARY ARTERIAL HYPERTENSION
     Dosage: UNK
     Route: 048
     Dates: start: 200608, end: 20160901
  4. ENALAPRIL [ENALAPRIL MALEATE] [Concomitant]
     Active Substance: ENALAPRIL MALEATE
     Indication: PULMONARY ARTERIAL HYPERTENSION
     Dosage: 5 MG, DAY
     Route: 048
  5. FUROSEMIDE. [Concomitant]
     Active Substance: FUROSEMIDE
     Dosage: 100 MG, UNK
     Route: 048
  6. FUROSEMIDE. [Concomitant]
     Active Substance: FUROSEMIDE
     Dosage: 20 MG, QD
     Route: 048
  7. UPTRAVI [Concomitant]
     Active Substance: SELEXIPAG
     Indication: PULMONARY ARTERIAL HYPERTENSION
     Dosage: UNK
     Route: 048
     Dates: start: 20180726
  8. REMODULIN [Suspect]
     Active Substance: TREPROSTINIL
     Dosage: 0.210 ?G/KG, CONTINUING
     Route: 058
  9. REMODULIN [Suspect]
     Active Substance: TREPROSTINIL
     Dosage: 85 MCL/H, CONTINUING
     Route: 058
     Dates: start: 201711
  10. REMODULIN [Suspect]
     Active Substance: TREPROSTINIL
     Dosage: 0.224 ?G/KG, CONTINUING
     Route: 058
  11. TRAMCET [Suspect]
     Active Substance: ACETAMINOPHEN\TRAMADOL
     Dosage: 2 TABLETS/DAY
     Route: 048
     Dates: start: 2016
  12. NORVASC [Concomitant]
     Active Substance: AMLODIPINE BESYLATE
     Indication: PULMONARY ARTERIAL HYPERTENSION
     Dosage: 2.5 MG, QD
     Route: 048
     Dates: end: 20161110
  13. OPSUMIT [Concomitant]
     Active Substance: MACITENTAN
     Indication: PULMONARY ARTERIAL HYPERTENSION
     Dosage: 10 MG, QD
     Route: 048
     Dates: start: 20160902
  14. SAMSCA [Concomitant]
     Active Substance: TOLVAPTAN
     Indication: PULMONARY ARTERIAL HYPERTENSION
     Dosage: 60 MG/DAY
     Route: 048
  15. REMODULIN [Suspect]
     Active Substance: TREPROSTINIL
     Dosage: 0.105 ?G/KG, CONTINUING
     Route: 058
  16. ADCIRCA [Suspect]
     Active Substance: TADALAFIL
     Indication: PULMONARY ARTERIAL HYPERTENSION
     Dosage: 20 MG, Q12H
     Route: 048
     Dates: start: 201011
  17. POVIDONE-IODINE. [Concomitant]
     Active Substance: POVIDONE-IODINE
     Indication: PROPHYLAXIS
     Dosage: UNK, Q6H
     Route: 049
     Dates: end: 20190305
  18. REMODULIN [Suspect]
     Active Substance: TREPROSTINIL
     Indication: PULMONARY ARTERIAL HYPERTENSION
     Dosage: UNK, CONTINUING
     Route: 041
     Dates: start: 201709
  19. REMODULIN [Suspect]
     Active Substance: TREPROSTINIL
     Indication: PULMONARY ARTERIAL HYPERTENSION
     Dosage: UNK, CONTINUING
     Route: 058
     Dates: start: 20160217
  20. TRAMCET [Suspect]
     Active Substance: ACETAMINOPHEN\TRAMADOL
     Indication: PROPHYLAXIS
     Dosage: 2 TABLETS/DAY
     Route: 048
     Dates: start: 2016
  21. AMLODIPINE [Concomitant]
     Active Substance: AMLODIPINE BESYLATE
     Indication: PULMONARY ARTERIAL HYPERTENSION
     Dosage: UNK
     Route: 048
     Dates: start: 20161111, end: 20170911
  22. CIBENOL [Concomitant]
     Active Substance: CIFENLINE
     Indication: PULMONARY ARTERIAL HYPERTENSION
     Dosage: UNK
     Route: 048
     Dates: start: 20171027
  23. REMODULIN [Suspect]
     Active Substance: TREPROSTINIL
     Dosage: 0.0107 ?G/KG, CONTINUING
     Route: 058
  24. WARFARIN [WARFARIN POTASSIUM] [Suspect]
     Active Substance: WARFARIN POTASSIUM
     Indication: PULMONARY ARTERIAL HYPERTENSION
     Dosage: 4 MG/DAY
     Route: 048
     Dates: start: 20170908
  25. TRAMCET [Suspect]
     Active Substance: ACETAMINOPHEN\TRAMADOL
     Indication: PAIN
     Dosage: UNK, ONE TIME DOSE AT NIGHT
     Route: 048
     Dates: start: 20160223, end: 20160223
  26. TRAMCET [Suspect]
     Active Substance: ACETAMINOPHEN\TRAMADOL
     Dosage: 6 TABLETS/DAY
     Route: 048
     Dates: start: 2016
  27. FUROSEMIDE. [Concomitant]
     Active Substance: FUROSEMIDE
     Indication: PULMONARY ARTERIAL HYPERTENSION
     Dosage: 40 MG, QD
     Route: 048
  28. TRAMCET [Suspect]
     Active Substance: ACETAMINOPHEN\TRAMADOL
     Dosage: 2 TABLETS/DAY, (ONCE/DAY, PRN)
     Route: 048
     Dates: start: 2016
  29. FUROSEMIDE. [Concomitant]
     Active Substance: FUROSEMIDE
     Dosage: 60 MG, UNK
     Route: 048
  30. SAMSCA [Concomitant]
     Active Substance: TOLVAPTAN
     Dosage: 7.5 MG/DAY
     Route: 048
  31. REMODULIN [Suspect]
     Active Substance: TREPROSTINIL
     Dosage: 0.202 ?G/KG, CONTINUING
     Route: 058
     Dates: end: 201709
  32. LOXOPROFEN SODIUM HYDRATE [Concomitant]
     Active Substance: LOXOPROFEN SODIUM DIHYDRATE
     Indication: PRODUCT USED FOR UNKNOWN INDICATION
     Dosage: 60 MG, QD
     Route: 048

REACTIONS (8)
  - Quadriplegia [Recovering/Resolving]
  - Staphylococcal infection [Not Recovered/Not Resolved]
  - Cardiac failure [Recovering/Resolving]
  - Vascular device infection [Not Recovered/Not Resolved]
  - Dysuria [Not Recovered/Not Resolved]
  - Rash [Recovering/Resolving]
  - Spinal epidural haematoma [Recovered/Resolved with Sequelae]
  - Arthralgia [Not Recovered/Not Resolved]

NARRATIVE: CASE EVENT DATE: 201709
